FAERS Safety Report 5817411-X (Version None)
Quarter: 2008Q3

REPORT INFORMATION
  Report Type: 
  Country: None (occurrence: None)
  Receive Date: 20080715
  Receipt Date: 20080702
  Transmission Date: 20090109
  Serious: Yes (Other)
  Sender: FDA-Public Use
  Company Number: 6044092

PATIENT
  Age: 79 Year
  Sex: Female

DRUGS (4)
  1. BICOR(10 MG, TABLET) (BISOPROLOL FUMARATE) [Suspect]
     Indication: HEART RATE IRREGULAR
     Dosage: 10 MG, (10 MG, 1 IN 1 D); ORAL
     Route: 048
     Dates: start: 20071227
  2. COVERSYL (PERIDOPRIL) [Concomitant]
  3. WARFARIN SODIUM [Concomitant]
  4. LANOXIN [Concomitant]

REACTIONS (8)
  - BALANCE DISORDER [None]
  - DECREASED APPETITE [None]
  - DEPRESSION [None]
  - FATIGUE [None]
  - GAIT DISTURBANCE [None]
  - RHINORRHOEA [None]
  - VISION BLURRED [None]
  - WEIGHT DECREASED [None]
